FAERS Safety Report 23528689 (Version 1)
Quarter: 2024Q1

REPORT INFORMATION
  Report Type: Spontaneous
  Country: CA (occurrence: CA)
  Receive Date: 20240215
  Receipt Date: 20240215
  Transmission Date: 20240410
  Serious: Yes (Hospitalization, Other)
  Sender: FDA-Public Use
  Company Number: CA-HLS-202400327

PATIENT
  Sex: Female
  Weight: 105 kg

DRUGS (3)
  1. CLOZAPINE [Suspect]
     Active Substance: CLOZAPINE
     Indication: Schizophrenia
     Dosage: 1 EVERY 1 DAYS?AMOUNT: 100 MILLIGRAM?TABLETS DOSAGE FORM?THERAPY DURATION: 3 MONTHS
     Route: 065
  2. RISPERIDONE [Concomitant]
     Active Substance: RISPERIDONE
     Dosage: 1 EVERY 1 DAYS?AMOUNT: 6 MILLIGRAM?NOT SPECIFIED DOSAGE FORM
     Route: 065
  3. VENLAFAXINE HYDROCHLORIDE [Concomitant]
     Active Substance: VENLAFAXINE HYDROCHLORIDE
     Dosage: 1 EVERY 1 DAYS?AMOUNT: 225 MILLIGRAM
     Route: 065

REACTIONS (3)
  - C-reactive protein increased [Unknown]
  - Myocarditis [Unknown]
  - White blood cell count increased [Unknown]
